FAERS Safety Report 14851215 (Version 1)
Quarter: 2018Q2

REPORT INFORMATION
  Report Type: Spontaneous
  Country: DE (occurrence: DE)
  Receive Date: 20180507
  Receipt Date: 20180507
  Transmission Date: 20180711
  Serious: Yes (Hospitalization)
  Sender: FDA-Public Use
  Company Number: DE-SUN PHARMACEUTICAL INDUSTRIES LTD-2018RR-171845

PATIENT
  Age: 62 Year
  Sex: Male
  Weight: 60 kg

DRUGS (12)
  1. MESALAZIN [Concomitant]
     Active Substance: MESALAMINE
     Indication: PRODUCT USED FOR UNKNOWN INDICATION
     Dosage: 500 MG, 2-2-2-0, TABLETTEN ()
     Route: 048
  2. FENOTEROL W/IPRATROPIUM [Concomitant]
     Active Substance: FENOTEROL
     Indication: PRODUCT USED FOR UNKNOWN INDICATION
     Dosage: 0.05/0.02 MG, BEDARF, DOSIERAEROSOL ()
     Route: 055
  3. TAMSULOSIN [Concomitant]
     Active Substance: TAMSULOSIN
     Indication: PRODUCT USED FOR UNKNOWN INDICATION
     Dosage: 0.4 MG, 1-0-0-0, TABLETTEN ()
     Route: 048
  4. INDACATEROL/GLYCOPYRRONIUMBROMID [Concomitant]
     Indication: PRODUCT USED FOR UNKNOWN INDICATION
     Dosage: 85/43 ?G, 1-0-0-0, DOSIERAEROSOL
     Route: 055
  5. CARVEDILOL. [Concomitant]
     Active Substance: CARVEDILOL
     Indication: PRODUCT USED FOR UNKNOWN INDICATION
     Dosage: 25 MG, 2-0-2-0, TABLETTEN ()
     Route: 048
  6. OMEPRAZOL [Concomitant]
     Active Substance: OMEPRAZOLE
     Indication: PRODUCT USED FOR UNKNOWN INDICATION
     Dosage: 20 MG, 1-0-0-0, TABLETTEN
     Route: 048
  7. CLOPIDOGREL [Suspect]
     Active Substance: CLOPIDOGREL BISULFATE
     Indication: PRODUCT USED FOR UNKNOWN INDICATION
     Dosage: 75 MG, 1-0-0-0, TABLETTEN
     Route: 048
  8. ATORVASTATIN [Concomitant]
     Active Substance: ATORVASTATIN
     Indication: PRODUCT USED FOR UNKNOWN INDICATION
     Dosage: 80 MG, 0-0-1-0, TABLETTEN ()
     Route: 048
  9. MIRTAZAPIN [Concomitant]
     Active Substance: MIRTAZAPINE
     Indication: PRODUCT USED FOR UNKNOWN INDICATION
     Dosage: 15 MG, 0-0-0-1, TABLETTEN ()
     Route: 048
  10. ESCITALOPRAM [Concomitant]
     Active Substance: ESCITALOPRAM OXALATE
     Indication: PRODUCT USED FOR UNKNOWN INDICATION
     Dosage: 15 MG, 1-0-0-0, TABLETTEN ()
     Route: 048
  11. ACETYLSALICYLSAEURE [Suspect]
     Active Substance: ASPIRIN
     Indication: PRODUCT USED FOR UNKNOWN INDICATION
     Dosage: 100 MG, 1-0-0-0, TABLETTEN ()
     Route: 048
  12. RAMIPRIL. [Concomitant]
     Active Substance: RAMIPRIL
     Indication: PRODUCT USED FOR UNKNOWN INDICATION
     Dosage: 10 MG, 0-0-1-0, TABLETTEN ()
     Route: 048

REACTIONS (6)
  - Angina pectoris [Unknown]
  - Anaemia [Unknown]
  - Haematochezia [Unknown]
  - Gastrointestinal haemorrhage [Unknown]
  - Hypotension [Unknown]
  - Dizziness [Unknown]
